FAERS Safety Report 10622047 (Version 1)
Quarter: 2014Q4

REPORT INFORMATION
  Report Type: Spontaneous
  Country: US (occurrence: None)
  Receive Date: 20141201
  Receipt Date: 20141201
  Transmission Date: 20150529
  Serious: No
  Sender: FDA-Public Use
  Company Number: None

PATIENT
  Age: 55 Year

DRUGS (1)
  1. BELVIQ [Suspect]
     Active Substance: LORCASERIN HYDROCHLORIDE
     Indication: WEIGHT DECREASED
     Dosage: 1 TAB TWICE A DAY    TAKEN BY MOUTH
     Route: 048

REACTIONS (7)
  - Stomatitis [None]
  - Somnolence [None]
  - Diarrhoea [None]
  - Anxiety [None]
  - Drug withdrawal syndrome [None]
  - Nausea [None]
  - Sleep disorder [None]

NARRATIVE: CASE EVENT DATE: 20141030
